FAERS Safety Report 8022851-7 (Version None)
Quarter: 2012Q1

REPORT INFORMATION
  Report Type: 
  Country: None (occurrence: None)
  Receive Date: 20120104
  Receipt Date: 20111226
  Transmission Date: 20120608
  Serious: Yes (Death, Other)
  Sender: FDA-Public Use
  Company Number: JP-ROCHE-1025870

PATIENT
  Age: 70 Year
  Sex: Female
  Weight: 51 kg

DRUGS (14)
  1. FLUOROURACIL [Concomitant]
     Indication: RECTAL CANCER RECURRENT
     Dosage: DOSAGE IS UNCERTAIN.
     Route: 040
  2. FLURBIPROFEN [Concomitant]
     Dosage: DOSAGE IS UNCERTAIN.
     Route: 065
  3. MIYA BM [Concomitant]
     Dosage: DOSAGE IS UNCERTAIN.
     Route: 048
  4. LOXOPROFEN [Concomitant]
     Dosage: DOSAGE IS UNCERTAIN.
     Route: 065
  5. RHYTHMY [Concomitant]
     Dosage: DOSAGE IS UNCERTAIN.
     Route: 048
  6. GRIMAC [Concomitant]
     Dosage: DOSAGE IS UNCERTAIN.
     Route: 048
  7. GRANISETRON [Concomitant]
     Dosage: DOSAGE IS UNCERTAIN.
     Route: 065
  8. METIXENE HYDROCHLORIDE [Concomitant]
     Dosage: DOSAGE IS UNCERTAIN.
     Route: 048
  9. AVASTIN [Suspect]
     Indication: RECTAL CANCER RECURRENT
     Route: 041
     Dates: start: 20111101, end: 20111101
  10. MUCOSTA [Concomitant]
     Dosage: DOSAGE IS UNCERTAIN.
     Route: 048
  11. OXALIPLATIN [Suspect]
     Indication: RECTAL CANCER RECURRENT
     Route: 041
     Dates: start: 20111101, end: 20111101
  12. LEVOLEUCOVORIN CALCIUM [Suspect]
     Indication: RECTAL CANCER RECURRENT
     Route: 041
     Dates: start: 20111101, end: 20111101
  13. FLUOROURACIL [Concomitant]
     Dosage: DOSAGE IS UNCERTAIN.
     Route: 041
  14. DEXAMETHASONE SODIUM PHOSPHATE [Concomitant]
     Dosage: DOSAGE IS UNCERTAIN.
     Route: 042

REACTIONS (12)
  - HAEMATURIA [None]
  - VOMITING [None]
  - OXYGEN SATURATION DECREASED [None]
  - CARDIO-RESPIRATORY ARREST [None]
  - HAEMOLYSIS [None]
  - ABDOMINAL PAIN [None]
  - RENAL IMPAIRMENT [None]
  - PYREXIA [None]
  - GENERAL PHYSICAL HEALTH DETERIORATION [None]
  - BLOOD PRESSURE DECREASED [None]
  - HEPATIC ENZYME INCREASED [None]
  - PLATELET COUNT DECREASED [None]
